FAERS Safety Report 7811329-9 (Version None)
Quarter: 2011Q4

REPORT INFORMATION
  Report Type: 
  Country: None (occurrence: None)
  Receive Date: 20111013
  Receipt Date: 20111005
  Transmission Date: 20120403
  Serious: Yes (Other)
  Sender: FDA-Public Use
  Company Number: US-PFIZER INC-2011239899

PATIENT
  Age: 82 Year
  Sex: Female

DRUGS (1)
  1. METHYLPREDNISOLONE ACETATE [Suspect]
     Indication: BURSITIS
     Dosage: 40 MG, UNK

REACTIONS (1)
  - HALLUCINATION, VISUAL [None]
